FAERS Safety Report 4354879-2 (Version None)
Quarter: 2004Q2

REPORT INFORMATION
  Report Type: 
  Country: None (occurrence: None)
  Receive Date: 20040507
  Receipt Date: 20040421
  Transmission Date: 20050107
  Serious: Yes (Hospitalization)
  Sender: FDA-Public Use
  Company Number: DE-MERCK-0404DEU00114

PATIENT
  Age: 70 Year
  Sex: Female
  Weight: 115 kg

DRUGS (3)
  1. ZETIA [Suspect]
     Indication: HYPERLIPIDAEMIA
     Route: 048
     Dates: start: 20030501, end: 20040203
  2. HYDROXYZINE HYDROCHLORIDE [Concomitant]
     Indication: RESTLESSNESS
     Route: 048
     Dates: end: 20040211
  3. MOXONIDINE [Concomitant]
     Indication: HYPERTENSION
     Route: 048
     Dates: start: 20031101, end: 20040211

REACTIONS (4)
  - ANTINUCLEAR ANTIBODY POSITIVE [None]
  - CHOLELITHIASIS [None]
  - HEPATITIS CHOLESTATIC [None]
  - HEPATOMEGALY [None]
